FAERS Safety Report 6564862-4 (Version None)
Quarter: 2010Q1

REPORT INFORMATION
  Report Type: 
  Country: None (occurrence: None)
  Receive Date: 20100201
  Receipt Date: 20100119
  Transmission Date: 20100710
  Serious: Yes (Other)
  Sender: FDA-Public Use
  Company Number: US-PFIZER INC-2010011051

PATIENT
  Sex: Female
  Weight: 66.7 kg

DRUGS (9)
  1. ZOLOFT [Suspect]
     Indication: DEPRESSION
  2. ZOLOFT [Suspect]
     Indication: MOOD ALTERED
  3. FOSAMAX PLUS D [Concomitant]
  4. ALBUTEROL [Concomitant]
     Dosage: FREQUENCY: AS NEEDED,
  5. ADVAIR DISKUS 100/50 [Concomitant]
     Dosage: FREQUENCY: AS NEEDED,
  6. VITAMINS [Concomitant]
     Dosage: UNK
  7. SPIRIVA [Concomitant]
     Dosage: UNK
  8. ACETYLSALICYLIC ACID [Concomitant]
     Dosage: DAILY
  9. VITAMIN C [Concomitant]
     Dosage: UNK

REACTIONS (4)
  - COELIAC DISEASE [None]
  - CROHN'S DISEASE [None]
  - DERMATITIS HERPETIFORMIS [None]
  - IRRITABLE BOWEL SYNDROME [None]
